FAERS Safety Report 6814514-8 (Version None)
Quarter: 2010Q2

REPORT INFORMATION
  Report Type: 
  Country: None (occurrence: None)
  Receive Date: 20100629
  Receipt Date: 20100617
  Transmission Date: 20101027
  Serious: Yes (Hospitalization)
  Sender: FDA-Public Use
  Company Number: 7005561

PATIENT
  Age: 29 Year
  Sex: Female

DRUGS (2)
  1. REBIF [Suspect]
     Indication: MULTIPLE SCLEROSIS
     Dosage: 8.8 MCG, 3 IN 1 WK, SUBCUTANEOUS
     Route: 058
     Dates: start: 20100507, end: 20100517
  2. BUTALBITAL (BUTALBITAL) [Concomitant]

REACTIONS (5)
  - CONVULSION [None]
  - FALL [None]
  - HEAD INJURY [None]
  - MULTIPLE SCLEROSIS RELAPSE [None]
  - PAIN [None]
